FAERS Safety Report 24969813 (Version 2)
Quarter: 2025Q3

REPORT INFORMATION
  Report Type: Report from Study
  Country: JP (occurrence: JP)
  Receive Date: 20250214
  Receipt Date: 20250707
  Transmission Date: 20251020
  Serious: Yes (Other)
  Sender: ROCHE
  Company Number: JP-CHUGAI-2025003803

PATIENT
  Age: 23 Year
  Sex: Male
  Weight: 46.5 kg

DRUGS (6)
  1. PIASKY [Suspect]
     Active Substance: CROVALIMAB-AKKZ
     Indication: Paroxysmal nocturnal haemoglobinuria
     Dosage: 640 MILLIGRAM, ONCE/4WEEKS
     Route: 042
     Dates: start: 20241129, end: 20241129
  2. PIASKY [Suspect]
     Active Substance: CROVALIMAB-AKKZ
     Dosage: 640 MILLIGRAM, ONCE/4WEEKS
     Route: 058
     Dates: start: 20241130, end: 20241224
  3. PIASKY [Suspect]
     Active Substance: CROVALIMAB-AKKZ
     Route: 058
     Dates: start: 20250121, end: 20250219
  4. MENQUADFI [Concomitant]
     Active Substance: MENINGOCOCCAL (GROUPS A, C, Y, W) CONJUGATE VACCINE
     Route: 065
     Dates: start: 20241118
  5. ACTHIB [Concomitant]
     Active Substance: HAEMOPHILUS B CONJUGATE VACCINE (TETANUS TOXOID CONJUGATE)\HAEMOPHILUS INFLUENZAE TYPE B STRAIN 1482
     Route: 065
     Dates: start: 20241118
  6. PNEUMOCOCCAL VACCINE NOS [Concomitant]
     Active Substance: PNEUMOCOCCAL VACCINE
     Route: 065
     Dates: start: 20241118

REACTIONS (3)
  - Anaemia [Not Recovered/Not Resolved]
  - Pyrexia [Unknown]
  - Drug ineffective [Unknown]
